FAERS Safety Report 25065246 (Version 1)
Quarter: 2025Q1

REPORT INFORMATION
  Report Type: Spontaneous
  Country: DE (occurrence: DE)
  Receive Date: 20250311
  Receipt Date: 20250311
  Transmission Date: 20250409
  Serious: Yes (Other)
  Sender: TEVA
  Company Number: DE-TEVA-VS-3306075

PATIENT
  Age: 39 Year
  Sex: Male

DRUGS (5)
  1. LISDEXAMFETAMINE [Suspect]
     Active Substance: LISDEXAMFETAMINE
     Indication: Attention deficit hyperactivity disorder
     Dosage: RATIOPHARM 20 MG HARTKAPSELN, TOOK 50 MG LISDEXAMFETAMIN-RATIOPHARM IN THE MORNING, AND THEN TOOK...
     Route: 065
  2. LISDEXAMFETAMINE [Suspect]
     Active Substance: LISDEXAMFETAMINE
     Indication: Attention deficit hyperactivity disorder
     Dosage: DEPENDING ON HOW HE CAN CONCENTRATE
     Route: 065
  3. LISDEXAMFETAMINE [Suspect]
     Active Substance: LISDEXAMFETAMINE
     Indication: Attention deficit hyperactivity disorder
     Route: 065
  4. LISDEXAMFETAMINE [Suspect]
     Active Substance: LISDEXAMFETAMINE
     Indication: Attention deficit hyperactivity disorder
     Dosage: RATIOPHARM 20 MG HARTKAPSELN, ONLY TOOK 2X20 MG
     Route: 065
  5. LISDEXAMFETAMINE [Suspect]
     Active Substance: LISDEXAMFETAMINE
     Indication: Attention deficit hyperactivity disorder
     Route: 065

REACTIONS (4)
  - Tunnel vision [Unknown]
  - Euphoric mood [Unknown]
  - Drug intolerance [Unknown]
  - Time perception altered [Unknown]

NARRATIVE: CASE EVENT DATE: 20250228
